FAERS Safety Report 10280695 (Version 1)
Quarter: 2014Q3

REPORT INFORMATION
  Report Type: Spontaneous
  Country: CN (occurrence: CN)
  Receive Date: 20140707
  Receipt Date: 20140707
  Transmission Date: 20150326
  Serious: Yes (Death)
  Sender: FDA-Public Use
  Company Number: CN-PFIZER INC-2014183797

PATIENT
  Age: 77 Year
  Sex: Male
  Weight: 75 kg

DRUGS (4)
  1. SULPERAZON [Concomitant]
     Active Substance: CEFOPERAZONE SODIUM\SULBACTAM SODIUM
     Indication: INFECTION
     Dosage: 2 G, 2X/DAY
     Route: 041
     Dates: start: 20090123, end: 20090125
  2. FORTUM [Concomitant]
     Active Substance: CEFTAZIDIME
     Dosage: 2 G, 2X/DAY
     Dates: start: 20090125, end: 20090128
  3. CIPROBAY [Suspect]
     Active Substance: CIPROFLOXACIN
     Indication: INFECTION
     Dosage: 0.4 G, 1X/DAY
     Dates: start: 20090121
  4. ZYVOX [Suspect]
     Active Substance: LINEZOLID
     Indication: LUNG INFECTION
     Dosage: 600 MG, 2X/DAY
     Route: 041
     Dates: start: 20090121

REACTIONS (2)
  - Platelet count decreased [Fatal]
  - Haemoglobin decreased [Fatal]

NARRATIVE: CASE EVENT DATE: 20090122
